FAERS Safety Report 7146273-6 (Version None)
Quarter: 2010Q4

REPORT INFORMATION
  Report Type: 
  Country: None (occurrence: None)
  Receive Date: 20101208
  Receipt Date: 20101110
  Transmission Date: 20110411
  Serious: No
  Sender: FDA-Public Use
  Company Number: US-BAYER-2010-001556

PATIENT
  Age: 53 Year
  Sex: Female
  Weight: 100 kg

DRUGS (7)
  1. ALEVE (CAPLET) [Suspect]
     Dosage: 440 MG, QD
  2. INSULIN [INSULIN] [Concomitant]
  3. LANTUS [Concomitant]
  4. GLUCOPHAGE [Concomitant]
  5. UNCODEABLE ^UNCLASSIFIABLE^ [Concomitant]
  6. ATENOLOL [Concomitant]
  7. ANALGESICS [Concomitant]

REACTIONS (1)
  - DRUG INEFFECTIVE [None]
